FAERS Safety Report 8026204-7 (Version None)
Quarter: 2012Q1

REPORT INFORMATION
  Report Type: 
  Country: None (occurrence: None)
  Receive Date: 20120105
  Receipt Date: 20111229
  Transmission Date: 20120608
  Serious: Yes (Other)
  Sender: FDA-Public Use
  Company Number: US-ASTRAZENECA-2012SE00061

PATIENT
  Age: 76 Year
  Sex: Female

DRUGS (5)
  1. PLAVIX [Suspect]
     Route: 065
  2. VITAMIN D [Concomitant]
  3. SYNTHROID [Concomitant]
  4. OMEPRAZOLE [Suspect]
     Route: 048
  5. NEXIUM [Suspect]
     Route: 048

REACTIONS (3)
  - THROAT IRRITATION [None]
  - DRUG DOSE OMISSION [None]
  - RENAL FAILURE [None]
